FAERS Safety Report 18475109 (Version 1)
Quarter: 2020Q4

REPORT INFORMATION
  Report Type: Spontaneous
  Country: US (occurrence: US)
  Receive Date: 20201106
  Receipt Date: 20201106
  Transmission Date: 20210114
  Serious: No
  Sender: FDA-Public Use
  Company Number: US-009507513-2010USA008389

PATIENT
  Age: 57 Year
  Sex: Female

DRUGS (7)
  1. DECADRON [Concomitant]
     Active Substance: DEXAMETHASONE
     Indication: INFUSION RELATED REACTION
     Dosage: UNK
  2. SINGULAIR [Suspect]
     Active Substance: MONTELUKAST SODIUM
     Indication: INFUSION RELATED REACTION
     Dosage: UNK
     Route: 048
  3. ALBUTEROL (+) IPRATROPIUM BROMIDE [Concomitant]
     Active Substance: ALBUTEROL\IPRATROPIUM BROMIDE
     Indication: INFUSION RELATED REACTION
     Dosage: UNK
  4. FAMOTIDINE. [Concomitant]
     Active Substance: FAMOTIDINE
     Indication: INFUSION RELATED REACTION
     Dosage: UNK
  5. ACETAMINOPHEN. [Concomitant]
     Active Substance: ACETAMINOPHEN
     Indication: INFUSION RELATED REACTION
     Dosage: UNK
  6. DIPHENHYDRAMINE. [Concomitant]
     Active Substance: DIPHENHYDRAMINE
     Indication: INFUSION RELATED REACTION
     Dosage: UNK
  7. METHYLPREDNISOLONE. [Concomitant]
     Active Substance: METHYLPREDNISOLONE
     Indication: INFUSION RELATED REACTION
     Dosage: UNK

REACTIONS (1)
  - Off label use [Unknown]
